FAERS Safety Report 7787888-1 (Version None)
Quarter: 2011Q3

REPORT INFORMATION
  Report Type: 
  Country: None (occurrence: None)
  Receive Date: 20110930
  Receipt Date: 20110915
  Transmission Date: 20111222
  Serious: No
  Sender: FDA-Public Use
  Company Number: US-BIOGENIDEC-2011BI035911

PATIENT
  Age: 41 Year
  Sex: Female

DRUGS (6)
  1. VICODIN [Concomitant]
  2. TYSABRI [Suspect]
     Indication: MULTIPLE SCLEROSIS
     Route: 042
     Dates: start: 20090305, end: 20110418
  3. GABAPENTIN [Concomitant]
  4. CLONAZEPAM [Concomitant]
  5. DETROL [Concomitant]
  6. ATIVAN [Concomitant]

REACTIONS (1)
  - MULTIPLE SCLEROSIS RELAPSE [None]
